FAERS Safety Report 4375829-9 (Version None)
Quarter: 2004Q2

REPORT INFORMATION
  Report Type: 
  Country: None (occurrence: None)
  Receive Date: 20040609
  Receipt Date: 20040609
  Transmission Date: 20050107
  Serious: Yes (Hospitalization)
  Sender: FDA-Public Use
  Company Number: None

PATIENT
  Age: 84 Year
  Sex: 0

DRUGS (1)
  1. GLIPIZIDE [Suspect]
     Indication: DIABETES MELLITUS
     Dosage: 5 MG QD PO
     Route: 048

REACTIONS (3)
  - DECREASED APPETITE [None]
  - HYPOGLYCAEMIA [None]
  - MARKEDLY REDUCED DIETARY INTAKE [None]
